FAERS Safety Report 7752329-7 (Version None)
Quarter: 2011Q3

REPORT INFORMATION
  Report Type: 
  Country: None (occurrence: None)
  Receive Date: 20110915
  Receipt Date: 20110902
  Transmission Date: 20111222
  Serious: No
  Sender: FDA-Public Use
  Company Number: CA-ELI_LILLY_AND_COMPANY-CA201109000619

PATIENT
  Sex: Male

DRUGS (2)
  1. ZYPREXA [Suspect]
     Dosage: 5 MG, EACH EVENING
  2. ZYPREXA [Suspect]
     Indication: SCHIZOPHRENIA
     Dosage: 2.5 MG, EACH EVENING

REACTIONS (7)
  - SERUM FERRITIN INCREASED [None]
  - HYPERCHOLESTEROLAEMIA [None]
  - BLOOD TRIGLYCERIDES INCREASED [None]
  - DIABETES MELLITUS [None]
  - HAEMATURIA [None]
  - HYPERGLYCAEMIA [None]
  - ALANINE AMINOTRANSFERASE INCREASED [None]
